FAERS Safety Report 5049710-6 (Version None)
Quarter: 2006Q3

REPORT INFORMATION
  Report Type: 
  Country: None (occurrence: None)
  Receive Date: 20060707
  Receipt Date: 20060627
  Transmission Date: 20061208
  Serious: Yes (Death)
  Sender: FDA-Public Use
  Company Number: 226807

PATIENT
  Age: 62 Year
  Sex: Male
  Weight: 85.3 kg

DRUGS (3)
  1. AVASTIN [Suspect]
     Indication: NON-SMALL CELL LUNG CANCER
     Dosage: 100 MG, 500 MG
     Dates: start: 20060414
  2. ELOXATIN [Suspect]
     Indication: NON-SMALL CELL LUNG CANCER
     Dates: start: 20060414
  3. ALIMTA [Suspect]
     Indication: NON-SMALL CELL LUNG CANCER
     Dates: start: 20060414

REACTIONS (1)
  - DEATH [None]
